FAERS Safety Report 6274719-4 (Version None)
Quarter: 2009Q3

REPORT INFORMATION
  Report Type: 
  Country: None (occurrence: None)
  Receive Date: 20090721
  Receipt Date: 20080708
  Transmission Date: 20100115
  Serious: Yes (Other)
  Sender: FDA-Public Use
  Company Number: US-ASTRAZENECA-2008UW04313

PATIENT
  Age: 22880 Day
  Sex: Male
  Weight: 130.2 kg

DRUGS (7)
  1. SEROQUEL [Suspect]
     Indication: ANXIETY
     Route: 048
     Dates: start: 20060907, end: 20070420
  2. PREDNISONE [Concomitant]
     Dosage: 10-40 MG
     Route: 048
     Dates: start: 20070530
  3. NEXIUM [Concomitant]
     Indication: GASTROOESOPHAGEAL REFLUX DISEASE
     Route: 048
     Dates: start: 20070628
  4. NAMENDA [Concomitant]
     Indication: DEMENTIA
     Dates: start: 20071031
  5. HYDROCHLOROTHIAZIDE [Concomitant]
     Indication: HYPERTENSION
     Route: 048
     Dates: start: 20070626
  6. MUCINEX [Concomitant]
     Route: 048
     Dates: start: 20070530
  7. PHENERGAN [Concomitant]
     Indication: NAUSEA
     Dosage: 25 MG, EVERY FOUR HRS AS NEEDED
     Route: 048
     Dates: start: 20070626

REACTIONS (3)
  - DIABETES MELLITUS [None]
  - DIABETIC NEUROPATHY [None]
  - TYPE 2 DIABETES MELLITUS [None]
